FAERS Safety Report 9957669 (Version 1)
Quarter: 2014Q1

REPORT INFORMATION
  Report Type: Report from Study
  Country: US (occurrence: US)
  Receive Date: 20140304
  Receipt Date: 20140304
  Transmission Date: 20141002
  Serious: No
  Sender: FDA-Public Use
  Company Number: US-ABBVIE-13P-163-1091727-00

PATIENT
  Age: 66 Year
  Sex: Female
  Weight: 90.8 kg

DRUGS (8)
  1. HUMIRA [Suspect]
     Indication: PSORIASIS
     Dates: end: 201304
  2. ADVAIR [Concomitant]
     Indication: RESPIRATORY DISORDER
  3. ALENDRONATE [Concomitant]
     Indication: BONE LOSS
  4. AMLODIPINE [Concomitant]
     Indication: BLOOD PRESSURE MANAGEMENT
  5. HYDROCHLOROTHIAZIDE [Concomitant]
     Indication: BLOOD PRESSURE MANAGEMENT
  6. OMEPRAZOLE [Concomitant]
     Indication: GASTROOESOPHAGEAL REFLUX DISEASE
  7. SIMVASTATIN [Concomitant]
     Indication: CHOLESTEROSIS
  8. FLUOCINONIDE [Concomitant]
     Indication: PSORIASIS

REACTIONS (2)
  - Psoriasis [Not Recovered/Not Resolved]
  - Psoriasis [Recovered/Resolved]
